FAERS Safety Report 13526315 (Version 1)
Quarter: 2017Q2

REPORT INFORMATION
  Report Type: Spontaneous
  Country: US (occurrence: US)
  Receive Date: 20170508
  Receipt Date: 20170508
  Transmission Date: 20170830
  Serious: Yes (Hospitalization, Disabling)
  Sender: FDA-Public Use
  Company Number: None

PATIENT
  Age: 29 Year
  Sex: Male
  Weight: 72 kg

DRUGS (4)
  1. NUVIGIL [Suspect]
     Active Substance: ARMODAFINIL
     Indication: ATTENTION DEFICIT/HYPERACTIVITY DISORDER
     Dosage: ?          QUANTITY:1 TABLET(S);?
     Route: 048
     Dates: start: 20170227, end: 20170406
  2. WELLBUTRIN XL [Concomitant]
     Active Substance: BUPROPION HYDROCHLORIDE
  3. CYMBALTA [Concomitant]
     Active Substance: DULOXETINE HYDROCHLORIDE
  4. REMERON [Concomitant]
     Active Substance: MIRTAZAPINE

REACTIONS (12)
  - Muscle spasms [None]
  - Dizziness [None]
  - Restlessness [None]
  - Hyponatraemia [None]
  - Headache [None]
  - Fatigue [None]
  - Bradyphrenia [None]
  - Neck pain [None]
  - Confusional state [None]
  - Paraesthesia [None]
  - Thirst [None]
  - Asthenia [None]

NARRATIVE: CASE EVENT DATE: 20170307
